FAERS Safety Report 6287890-5 (Version None)
Quarter: 2009Q3

REPORT INFORMATION
  Report Type: 
  Country: None (occurrence: None)
  Receive Date: 20090729
  Receipt Date: 20090720
  Transmission Date: 20100115
  Serious: Yes (Other)
  Sender: FDA-Public Use
  Company Number: AU-JNJFOC-20090706186

PATIENT
  Sex: Female
  Weight: 66 kg

DRUGS (1)
  1. DURAGESIC-100 [Suspect]
     Indication: CANCER PAIN
     Route: 062

REACTIONS (3)
  - BREAST CANCER [None]
  - DYSPNOEA [None]
  - PERIPHERAL COLDNESS [None]
